FAERS Safety Report 26163651 (Version 1)
Quarter: 2025Q4

REPORT INFORMATION
  Report Type: Report from Study
  Country: JP (occurrence: JP)
  Receive Date: 20251216
  Receipt Date: 20251216
  Transmission Date: 20260117
  Serious: Yes (Hospitalization)
  Sender: EISAI
  Company Number: JP-Eisai-202500655_LEQ_P_1

PATIENT
  Age: 84 Year
  Sex: Female
  Weight: 44 kg

DRUGS (2)
  1. LEQEMBI [Suspect]
     Active Substance: LECANEMAB-IRMB
     Indication: Cognitive disorder
     Route: 042
     Dates: start: 20240910, end: 20250404
  2. MONTELUKAST [Concomitant]
     Active Substance: MONTELUKAST
     Indication: Prophylaxis
     Route: 048

REACTIONS (1)
  - Fracture [Unknown]

NARRATIVE: CASE EVENT DATE: 20250101
